FAERS Safety Report 17283366 (Version 1)
Quarter: 2020Q1

REPORT INFORMATION
  Report Type: Report from Study
  Country: IT (occurrence: IT)
  Receive Date: 20200117
  Receipt Date: 20200117
  Transmission Date: 20200409
  Serious: Yes (Other)
  Sender: FDA-Public Use
  Company Number: IT-PFIZER INC-2020015809

PATIENT
  Age: 98 Year
  Sex: Male

DRUGS (4)
  1. LOPRESOR [METOPROLOL TARTRATE] [Concomitant]
     Active Substance: METOPROLOL TARTRATE
     Indication: HYPERTENSION
     Dosage: 100 MG, UNK
     Route: 048
  2. HALCION [Suspect]
     Active Substance: TRIAZOLAM
     Indication: INITIAL INSOMNIA
     Dosage: 750 UG, TOTAL
     Route: 048
  3. TRIATEC [RAMIPRIL] [Concomitant]
     Active Substance: RAMIPRIL
     Indication: HYPERTENSION
     Dosage: 2.5 MG, UNK
     Route: 048
  4. NORVASC [Concomitant]
     Active Substance: AMLODIPINE BESYLATE
     Indication: HYPERTENSION
     Dosage: 10 MG, UNK
     Route: 048

REACTIONS (3)
  - Overdose [Recovered/Resolved]
  - Medication error [Recovered/Resolved]
  - Apraxia [Recovered/Resolved]

NARRATIVE: CASE EVENT DATE: 20191115
